FAERS Safety Report 19804761 (Version 1)
Quarter: 2021Q3

REPORT INFORMATION
  Report Type: Spontaneous
  Country: FR (occurrence: FR)
  Receive Date: 20210908
  Receipt Date: 20210908
  Transmission Date: 20211014
  Serious: Yes (Death, Hospitalization)
  Sender: FDA-Public Use
  Company Number: FR-MYLANLABS-2021M1058427

PATIENT
  Age: 14 Year
  Sex: Female
  Weight: 82 kg

DRUGS (20)
  1. MEROPENEM ANHYDROUS [Suspect]
     Active Substance: MEROPENEM ANHYDROUS
     Indication: SEPSIS
     Dosage: SEE COMMENT
     Route: 042
     Dates: start: 20200919, end: 20200923
  2. SUFENTANIL [Suspect]
     Active Substance: SUFENTANIL
     Indication: GENERAL ANAESTHESIA
     Dosage: DOSAGE UNKNOWN
     Route: 042
     Dates: start: 20200924, end: 20200924
  3. PROPOFOL. [Suspect]
     Active Substance: PROPOFOL
     Indication: GENERAL ANAESTHESIA
     Dosage: DOSAGE UNKNOWN
     Route: 042
     Dates: start: 20200924, end: 20200924
  4. LINEZOLIDE [Suspect]
     Active Substance: LINEZOLID
     Indication: SEPSIS
     Dosage: SEE COMMENT
     Route: 042
     Dates: start: 20200919, end: 20200923
  5. CELOCURINE                         /00057702/ [Concomitant]
     Active Substance: SUCCINYLCHOLINE CHLORIDE
     Dosage: UNK
  6. ATROPINE. [Concomitant]
     Active Substance: ATROPINE
     Dosage: UNK
  7. EMLA [Concomitant]
     Active Substance: LIDOCAINE\PRILOCAINE
     Dosage: UNK
     Route: 046
  8. LOVENOX [Concomitant]
     Active Substance: ENOXAPARIN SODIUM
     Dosage: UNK
     Route: 058
  9. VANCOMYCINE                        /00314401/ [Concomitant]
     Active Substance: VANCOMYCIN
     Dosage: UNK
  10. ORBENINE [Suspect]
     Active Substance: CLOXACILLIN SODIUM
     Indication: SEPSIS
     Dosage: SEE COMMENT
     Route: 042
  11. FLUDROCORTISONE [Concomitant]
     Active Substance: FLUDROCORTISONE
     Dosage: UNK
  12. FOSFOMYCINE [Concomitant]
     Active Substance: FOSFOMYCIN
     Dosage: UNK
  13. EPHEDRINE. [Concomitant]
     Active Substance: EPHEDRINE
     Dosage: UNK
  14. MIDAZOLAM. [Suspect]
     Active Substance: MIDAZOLAM
     Indication: GENERALISED TONIC-CLONIC SEIZURE
     Dosage: 5 MILLIGRAM, TOTAL
     Route: 042
     Dates: start: 20200924, end: 20200924
  15. HYDROCORTISONE. [Concomitant]
     Active Substance: HYDROCORTISONE
     Dosage: UNK
  16. PREDNISOLONE. [Concomitant]
     Active Substance: PREDNISOLONE
     Dosage: UNK
  17. ZOPHREN                            /00955301/ [Suspect]
     Active Substance: ONDANSETRON
     Indication: VOMITING
     Dosage: 4 MILLIGRAM, TOTAL
     Route: 042
     Dates: start: 20200924, end: 20200924
  18. CLAFORAN [Concomitant]
     Active Substance: CEFOTAXIME SODIUM
     Dosage: UNK
  19. SEVOFLURANE. [Suspect]
     Active Substance: SEVOFLURANE
     Indication: GENERAL ANAESTHESIA
     Dosage: DOSAGE UNKNOWN
     Route: 055
     Dates: start: 20200924, end: 20200924
  20. NUBAIN [Concomitant]
     Active Substance: NALBUPHINE HYDROCHLORIDE
     Dosage: UNK

REACTIONS (2)
  - Generalised tonic-clonic seizure [Recovered/Resolved]
  - Cardio-respiratory arrest [Fatal]

NARRATIVE: CASE EVENT DATE: 20200924
